FAERS Safety Report 5953318-5 (Version None)
Quarter: 2008Q4

REPORT INFORMATION
  Report Type: 
  Country: None (occurrence: None)
  Receive Date: 20081114
  Receipt Date: 20081104
  Transmission Date: 20090506
  Serious: Yes (Other)
  Sender: FDA-Public Use
  Company Number: BR-JNJFOC-20081004546

PATIENT
  Age: 34 Year
  Sex: Male

DRUGS (1)
  1. TOPAMAX [Suspect]
     Indication: DRUG USE FOR UNKNOWN INDICATION
     Route: 048

REACTIONS (12)
  - ABNORMAL BEHAVIOUR [None]
  - AGGRESSION [None]
  - ALOPECIA [None]
  - ANAL HAEMORRHAGE [None]
  - ATTENTION DEFICIT/HYPERACTIVITY DISORDER [None]
  - DECREASED INTEREST [None]
  - GINGIVAL BLEEDING [None]
  - HAIR COLOUR CHANGES [None]
  - INSOMNIA [None]
  - MEMORY IMPAIRMENT [None]
  - VOMITING [None]
  - WITHDRAWAL SYNDROME [None]
